FAERS Safety Report 12794911 (Version 1)
Quarter: 2016Q3

REPORT INFORMATION
  Report Type: Spontaneous
  Country: US (occurrence: US)
  Receive Date: 20160929
  Receipt Date: 20160929
  Transmission Date: 20161109
  Serious: No
  Sender: FDA-Public Use
  Company Number: US-BAUSCH-BL-2016-018266

PATIENT
  Age: 47 Year
  Sex: Female
  Weight: 58.11 kg

DRUGS (2)
  1. JUBLIA [Suspect]
     Active Substance: EFINACONAZOLE
     Indication: ONYCHOMYCOSIS
     Route: 061
     Dates: start: 2015
  2. GENERIC LAMISIL [Concomitant]
     Indication: ONYCHOMYCOSIS
     Dosage: ONCE DAILY FOR 10 DAYS OF EVERY MONTH
     Route: 048

REACTIONS (3)
  - Drug administration error [Unknown]
  - Off label use [Unknown]
  - No adverse event [Unknown]
